FAERS Safety Report 25177360 (Version 1)
Quarter: 2025Q2

REPORT INFORMATION
  Report Type: Report from Study
  Country: GB (occurrence: GB)
  Receive Date: 20250409
  Receipt Date: 20250409
  Transmission Date: 20250717
  Serious: Yes (Hospitalization, Other)
  Sender: ALEXION PHARMACEUTICALS
  Company Number: GB-AstraZeneca-CH-00841611A

PATIENT

DRUGS (1)
  1. FASENRA [Suspect]
     Active Substance: BENRALIZUMAB
     Indication: Asthma

REACTIONS (9)
  - Dyspnoea [Unknown]
  - Lower respiratory tract infection [Unknown]
  - Headache [Unknown]
  - Product dose omission issue [Unknown]
  - Uveitis [Unknown]
  - Malaise [Unknown]
  - Feeling hot [Unknown]
  - Fatigue [Unknown]
  - Decreased appetite [Unknown]
